FAERS Safety Report 9603400 (Version 1)
Quarter: 2013Q4

REPORT INFORMATION
  Report Type: Spontaneous
  Country: CA (occurrence: CA)
  Receive Date: 20131007
  Receipt Date: 20131007
  Transmission Date: 20140711
  Serious: Yes (Other)
  Sender: FDA-Public Use
  Company Number: CA-PURDUE-CAN-2013-0004477

PATIENT
  Sex: Female

DRUGS (1)
  1. BUTRANS TRANSDERMAL PATCH - 5 MCG/HR [Suspect]
     Indication: ARTHRITIS
     Dosage: 5 MCG, Q1H
     Route: 062

REACTIONS (1)
  - Delirium [Unknown]
